FAERS Safety Report 23927366 (Version 2)
Quarter: 2024Q2

REPORT INFORMATION
  Report Type: Spontaneous
  Country: US (occurrence: US)
  Receive Date: 20240531
  Receipt Date: 20240614
  Transmission Date: 20240716
  Serious: Yes (Other)
  Sender: FDA-Public Use
  Company Number: US-BEH-2024172738

PATIENT
  Age: 5 Year
  Sex: Male
  Weight: 18.6 kg

DRUGS (5)
  1. HIZENTRA [Suspect]
     Active Substance: HUMAN IMMUNOGLOBULIN G
     Indication: Primary immunodeficiency syndrome
     Dosage: UNK
     Route: 058
     Dates: start: 2022
  2. HIZENTRA [Suspect]
     Active Substance: HUMAN IMMUNOGLOBULIN G
     Dosage: 20 ML, QW
     Route: 058
     Dates: start: 20240512, end: 20240512
  3. HIZENTRA [Suspect]
     Active Substance: HUMAN IMMUNOGLOBULIN G
     Dosage: 20 ML, QW
     Route: 058
     Dates: start: 20240519, end: 20240519
  4. ALBUTEROL SULFATE [Concomitant]
     Active Substance: ALBUTEROL SULFATE
     Indication: Wheezing
     Dosage: 2 PUFFS AS NEEDED
     Route: 055
     Dates: start: 2021
  5. SYMBICORT [Concomitant]
     Active Substance: BUDESONIDE\FORMOTEROL FUMARATE DIHYDRATE
     Indication: Tracheomalacia
     Dosage: 2 PUFFS, DAILY
     Route: 055
     Dates: start: 2022

REACTIONS (6)
  - Infusion site ulcer [Not Recovered/Not Resolved]
  - Injection site mass [Recovered/Resolved with Sequelae]
  - Injection site induration [Recovered/Resolved with Sequelae]
  - Injection site vesicles [Not Recovered/Not Resolved]
  - Injection site pain [Not Recovered/Not Resolved]
  - Skin lesion [Not Recovered/Not Resolved]

NARRATIVE: CASE EVENT DATE: 20240513
